FAERS Safety Report 26053551 (Version 1)
Quarter: 2025Q4

REPORT INFORMATION
  Report Type: Spontaneous
  Country: US (occurrence: US)
  Receive Date: 20251117
  Receipt Date: 20251117
  Transmission Date: 20260117
  Serious: Yes (Hospitalization, Other)
  Sender: AIPING PHARMACEUTICAL
  Company Number: US-AIPING-2025AILIT00191

PATIENT
  Age: 65 Year
  Sex: Male

DRUGS (43)
  1. ARIPIPRAZOLE [Suspect]
     Active Substance: ARIPIPRAZOLE
     Indication: Antipsychotic therapy
     Dosage: ON DAY 14 TO15 DAY OF ADMISSION
     Route: 065
  2. ARIPIPRAZOLE [Suspect]
     Active Substance: ARIPIPRAZOLE
     Dosage: ON DAY 16 OF FIRST ADMISSION
     Route: 065
  3. ARIPIPRAZOLE [Suspect]
     Active Substance: ARIPIPRAZOLE
     Dosage: DAY 18 TO 23 OF FIRST ADMISSION
     Route: 065
  4. ARIPIPRAZOLE [Suspect]
     Active Substance: ARIPIPRAZOLE
     Dosage: DAY 24 TO 28 OF FIRST ADMISSION
     Route: 065
  5. ARIPIPRAZOLE [Suspect]
     Active Substance: ARIPIPRAZOLE
     Dosage: DAY 24 TO 28 ON HOSPITAL. ON DAY 3 OF SECOND ADMISSION
     Route: 065
  6. ARIPIPRAZOLE [Suspect]
     Active Substance: ARIPIPRAZOLE
     Dosage: DAY 6 TO 10 OF SECOND ADMISSION
     Route: 065
  7. ARIPIPRAZOLE [Suspect]
     Active Substance: ARIPIPRAZOLE
     Dosage: ON DAY 11 OF SECOND ADMISSION
     Route: 065
  8. FUROSEMIDE [Concomitant]
     Active Substance: FUROSEMIDE
     Indication: Product used for unknown indication
     Dosage: ON DAY 2 TO 10 OF FIRST ADMISSION
     Route: 065
  9. FUROSEMIDE [Concomitant]
     Active Substance: FUROSEMIDE
     Dosage: ON DAY 11 OF FIRST ADMISSION
     Route: 065
  10. FUROSEMIDE [Concomitant]
     Active Substance: FUROSEMIDE
     Dosage: ON DAY 12 TO 21 OF FIRST ADMISSION
     Route: 065
  11. FUROSEMIDE [Concomitant]
     Active Substance: FUROSEMIDE
     Dosage: ON DAY 2 AND 3 OF SECOND ADMISSION
     Route: 065
  12. FUROSEMIDE [Concomitant]
     Active Substance: FUROSEMIDE
     Dosage: ON DAY 5 TO 10 OF SECOND ADMISSION
     Route: 065
  13. FUROSEMIDE [Concomitant]
     Active Substance: FUROSEMIDE
     Dosage: ON DAY 12 OF SECOND ADMISSION
     Route: 065
  14. FUROSEMIDE [Concomitant]
     Active Substance: FUROSEMIDE
     Dosage: ON DAY 13 TO 16 OF SECOND ADMISSION
     Route: 065
  15. FUROSEMIDE [Concomitant]
     Active Substance: FUROSEMIDE
     Dosage: ON DAY 17 TO 19 OF SECOND ADMISSION
     Route: 065
  16. FUROSEMIDE [Concomitant]
     Active Substance: FUROSEMIDE
     Dosage: ON DAY 21 TO 23 OF SECOND ADMISSION
     Route: 065
  17. FUROSEMIDE [Concomitant]
     Active Substance: FUROSEMIDE
     Dosage: ON DAY 24 OF SECOND ADMISSION
     Route: 065
  18. RISPERIDONE [Concomitant]
     Active Substance: RISPERIDONE
     Indication: Psychotic disorder
     Dosage: ON DAY 2 TO 8 OF FIRST ADMISSION
     Route: 065
  19. RISPERIDONE [Concomitant]
     Active Substance: RISPERIDONE
     Dosage: ON DAY 9 OF FIRST ADMISSION
     Route: 065
  20. RISPERIDONE [Concomitant]
     Active Substance: RISPERIDONE
     Dosage: ON DAY 10 TO 13 OF FIRST ADMISSION
     Route: 065
  21. RISPERIDONE [Concomitant]
     Active Substance: RISPERIDONE
     Dosage: ON DAY 14 OF FIRST ADMISSION
     Route: 065
  22. RISPERIDONE [Concomitant]
     Active Substance: RISPERIDONE
     Dosage: ON DAY 15 OF FIRST ADMISSION
     Route: 065
  23. RISPERIDONE [Concomitant]
     Active Substance: RISPERIDONE
     Dosage: ON DAY 16 OF FIRST ADMISSION
     Route: 065
  24. RISPERIDONE [Concomitant]
     Active Substance: RISPERIDONE
     Dosage: ON DAY 29 TO 36 OF FIRST ADMISSION
     Route: 065
  25. RISPERIDONE [Concomitant]
     Active Substance: RISPERIDONE
     Dosage: ON DAY 37 AND 38 OF FIRST ADMISSION
     Route: 065
  26. SPIRONOLACTONE [Concomitant]
     Active Substance: SPIRONOLACTONE
     Indication: Heart failure with reduced ejection fraction
     Dosage: FROM DAY 9 TO 59 OF FIRST ADMISSION
     Route: 065
  27. BUMETANIDE [Concomitant]
     Active Substance: BUMETANIDE
     Indication: Product used for unknown indication
     Dosage: ON DAY 21 AND 22 OF FIRST ADMISSION
     Route: 065
  28. BUMETANIDE [Concomitant]
     Active Substance: BUMETANIDE
     Dosage: ON DAY 23 AND 24 OF FIRST ADMISSION
     Route: 065
  29. BUMETANIDE [Concomitant]
     Active Substance: BUMETANIDE
     Dosage: FROM DAY 25 TO 27 OF FIRST ADMISSION
     Route: 065
  30. BUMETANIDE [Concomitant]
     Active Substance: BUMETANIDE
     Dosage: ON DAY 28 OF FIRST ADMISSION
     Route: 065
  31. BUMETANIDE [Concomitant]
     Active Substance: BUMETANIDE
     Dosage: FROM DAY 29 TO 41 OF FIRST ADMISSION
     Route: 065
  32. BUMETANIDE [Concomitant]
     Active Substance: BUMETANIDE
     Dosage: FROM DAY 45 TO 47 OF FIRST ADMISSION
     Route: 065
  33. LOXAPINE [Concomitant]
     Active Substance: LOXAPINE
     Indication: Antipsychotic therapy
     Dosage: ON DAY 37 OF FIRST ADMISSION
     Route: 065
  34. LOXAPINE [Concomitant]
     Active Substance: LOXAPINE
     Dosage: ON DAY 38 OF FIRST ADMISSION
     Route: 065
  35. LOXAPINE [Concomitant]
     Active Substance: LOXAPINE
     Dosage: FROM DAY 39 TO 51 OF FIRST ADMISSION
     Route: 065
  36. LOXAPINE [Concomitant]
     Active Substance: LOXAPINE
     Dosage: FROM DAY 51 TO 57 OF FIRST ADMISSION
     Route: 065
  37. LOXAPINE [Concomitant]
     Active Substance: LOXAPINE
     Dosage: ON DAY 58 AND 59 OF FIRST ADMISSION
     Route: 065
  38. LOXAPINE [Concomitant]
     Active Substance: LOXAPINE
     Dosage: ON DAY 67 OF FIRST ADMISSION
     Route: 065
  39. TRAZODONE [Concomitant]
     Active Substance: TRAZODONE HYDROCHLORIDE
     Indication: Antipsychotic therapy
     Dosage: ON DAY 22 OF FIRST ADMISSION
     Route: 065
  40. TRAZODONE [Concomitant]
     Active Substance: TRAZODONE HYDROCHLORIDE
     Dosage: ON DAY 23 OF FIRST ADMISSION
     Route: 065
  41. TRAZODONE [Concomitant]
     Active Substance: TRAZODONE HYDROCHLORIDE
     Dosage: FROM DAY 24 TO 26 OF FIRST ADMISSION
     Route: 065
  42. TRAZODONE [Concomitant]
     Active Substance: TRAZODONE HYDROCHLORIDE
     Dosage: FROM DAY 11 TO 17 OF SECOND ADMISSION
     Route: 065
  43. TRAZODONE [Concomitant]
     Active Substance: TRAZODONE HYDROCHLORIDE
     Dosage: FROM DAY 18 TO 24 OF SECOND ADMISSION
     Route: 065

REACTIONS (1)
  - Inappropriate antidiuretic hormone secretion [Recovered/Resolved]
